FAERS Safety Report 7127196-5 (Version None)
Quarter: 2010Q4

REPORT INFORMATION
  Report Type: 
  Country: None (occurrence: None)
  Receive Date: 20101129
  Receipt Date: 20100319
  Transmission Date: 20110411
  Serious: No
  Sender: FDA-Public Use
  Company Number: US-PFIZER INC-2010032323

PATIENT
  Age: 54 Year
  Sex: Male
  Weight: 83.9 kg

DRUGS (1)
  1. VIAGRA [Suspect]
     Dosage: 50 MG, UNK
     Dates: start: 20100215, end: 20100101

REACTIONS (5)
  - ABDOMINAL DISCOMFORT [None]
  - DIARRHOEA [None]
  - FEELING ABNORMAL [None]
  - HEADACHE [None]
  - NAUSEA [None]
